FAERS Safety Report 24767619 (Version 1)
Quarter: 2024Q4

REPORT INFORMATION
  Report Type: Spontaneous
  Country: GB (occurrence: None)
  Receive Date: 20241221
  Receipt Date: 20241221
  Transmission Date: 20250114
  Serious: Yes (Disabling)
  Sender: Public
  Company Number: None

PATIENT
  Age: 24 Year
  Sex: Female
  Weight: 43 kg

DRUGS (2)
  1. SERTRALINE [Suspect]
     Active Substance: SERTRALINE HYDROCHLORIDE
     Indication: Obsessive-compulsive disorder
     Dosage: OTHER QUANTITY : 1 TABLET(S);?FREQUENCY : DAILY;?
     Route: 048
     Dates: start: 20151117, end: 20190410
  2. DIAZEPAM [Concomitant]
     Active Substance: DIAZEPAM

REACTIONS (14)
  - Genital hypoaesthesia [None]
  - Loss of libido [None]
  - Emotional disorder [None]
  - Cognitive disorder [None]
  - Fatigue [None]
  - Anhedonia [None]
  - Peripheral venous disease [None]
  - Memory impairment [None]
  - Sleep disorder [None]
  - Weight decreased [None]
  - Blindness [None]
  - Visual snow syndrome [None]
  - Depersonalisation/derealisation disorder [None]
  - Decreased appetite [None]

NARRATIVE: CASE EVENT DATE: 20151117
